FAERS Safety Report 5238809-7 (Version None)
Quarter: 2007Q1

REPORT INFORMATION
  Report Type: 
  Country: None (occurrence: None)
  Receive Date: 20070215
  Receipt Date: 20070205
  Transmission Date: 20070707
  Serious: Yes (Hospitalization)
  Sender: FDA-Public Use
  Company Number: FR-ABBOTT-07P-056-0358286-00

PATIENT
  Age: 10 Year
  Sex: Male

DRUGS (6)
  1. DEPAKENE [Suspect]
     Indication: UNEVALUABLE EVENT
     Route: 048
     Dates: start: 20010101, end: 20070101
  2. DEPAKENE [Suspect]
  3. MICROPAKINE [Suspect]
     Indication: UNEVALUABLE EVENT
     Dates: start: 20070101
  4. METHYLPHENIDATE HCL [Suspect]
     Indication: DRUG USE FOR UNKNOWN INDICATION
  5. FLUNARIZINE DIHYDROCHLORIDE [Suspect]
     Indication: DRUG USE FOR UNKNOWN INDICATION
  6. IBUPROFEN [Suspect]
     Indication: DRUG USE FOR UNKNOWN INDICATION

REACTIONS (4)
  - DERMATITIS BULLOUS [None]
  - DYSPHAGIA [None]
  - STEVENS-JOHNSON SYNDROME [None]
  - STOMATITIS [None]
